FAERS Safety Report 19865595 (Version 2)
Quarter: 2021Q3

REPORT INFORMATION
  Report Type: Spontaneous
  Country: US (occurrence: US)
  Receive Date: 20210922
  Receipt Date: 20210924
  Transmission Date: 20211014
  Serious: Yes (Other)
  Sender: FDA-Public Use
  Company Number: US-TEVA-2021-US-1956474

PATIENT
  Age: 70 Year
  Sex: Female

DRUGS (2)
  1. AUSTEDO [Suspect]
     Active Substance: DEUTETRABENAZINE
     Indication: HUNTINGTON^S DISEASE
     Dosage: 54 MILLIGRAM DAILY; 3 OF THE 9MG TABLETS TWICE A DAY
     Route: 065
     Dates: start: 20180901
  2. AUSTEDO [Suspect]
     Active Substance: DEUTETRABENAZINE
     Route: 065

REACTIONS (19)
  - Cardiac disorder [Unknown]
  - Hypokinesia [Recovering/Resolving]
  - Pain [Unknown]
  - Choking [Recovered/Resolved]
  - Prescribed overdose [Unknown]
  - Product use complaint [Unknown]
  - Mobility decreased [Unknown]
  - Bedridden [Unknown]
  - Fall [Unknown]
  - Somnolence [Unknown]
  - Product dose omission issue [Unknown]
  - Anal incontinence [Unknown]
  - Trunk injury [Unknown]
  - Urinary incontinence [Unknown]
  - Aspiration [Recovered/Resolved]
  - Dysphagia [Recovered/Resolved]
  - Dysphonia [Unknown]
  - Peripheral swelling [Unknown]
  - Drug ineffective [Unknown]

NARRATIVE: CASE EVENT DATE: 2020
